FAERS Safety Report 8958662 (Version 2)
Quarter: 2013Q1

REPORT INFORMATION
  Report Type: Spontaneous
  Country: GB (occurrence: None)
  Receive Date: 20121128
  Receipt Date: 20121130
  Transmission Date: 20140127
  Serious: Yes (Other)
  Sender: FDA-Public Use
  Company Number: AUR-APL-2012-04995

PATIENT
  Age: 60 Year
  Sex: Female
  Weight: 88.2 kg

DRUGS (9)
  1. METFORMIN (METFORMIN) [Suspect]
     Indication: PRODUCT USED FOR UNKNOWN INDICATION
     Dosage: UNKNOWN
  2. BYETTA [Suspect]
     Indication: TYPE 2 DIABETES MELLITUS
     Dosage: 10 MCG (5 MCG, 2 IN 1D), SUBCUTANEOUS
     Route: 058
  3. ASPIRIN (ACETYLSALICYLIC ACID) [Concomitant]
  4. BISOPROLOL (BISOPROLOL) [Concomitant]
  5. CANDESARTAN (CANDESARTAN) [Concomitant]
  6. FUROSEMIDE (FUROSEMIDE) [Concomitant]
  7. INSULIN GLARGINE (INSULIN GLARGINE) [Concomitant]
  8. OMEPRAZOLE (OMEPRAZOLE) [Concomitant]
  9. SPIRONOLACTONE (SPIRONOLACTONE) [Concomitant]

REACTIONS (2)
  - Nausea [None]
  - Renal failure acute [None]
